FAERS Safety Report 6234155-3 (Version None)
Quarter: 2009Q2

REPORT INFORMATION
  Report Type: 
  Country: None (occurrence: None)
  Receive Date: 20090618
  Receipt Date: 20090615
  Transmission Date: 20091009
  Serious: Yes (Death, Hospitalization)
  Sender: FDA-Public Use
  Company Number: US-BAYER-200918818NA

PATIENT
  Age: 69 Year
  Sex: Male
  Weight: 80 kg

DRUGS (13)
  1. SORAFENIB [Suspect]
     Indication: HEPATIC NEOPLASM MALIGNANT
     Dosage: TOTAL DAILY DOSE: 800 MG  UNIT DOSE: 200 MG
     Route: 048
     Dates: start: 20090410, end: 20090417
  2. SORAFENIB [Suspect]
     Dosage: TOTAL DAILY DOSE: 800 MG  UNIT DOSE: 200 MG
     Route: 048
     Dates: start: 20090501, end: 20090524
  3. GEMCITABINE [Suspect]
     Indication: HEPATIC NEOPLASM MALIGNANT
     Dosage: DAY 1 AND DAY 8 OF 21 DAY CYCLE
     Route: 042
     Dates: start: 20090410, end: 20090416
  4. CISPLATIN [Suspect]
     Indication: HEPATIC NEOPLASM MALIGNANT
     Dosage: UNIT DOSE: 30 MG/M2
     Route: 042
     Dates: start: 20090410
  5. METOPROLOL SUCCINATE [Concomitant]
     Dosage: TOTAL DAILY DOSE: 50 MG
  6. POTASSIUM CHLORIDE [Concomitant]
  7. METFORMIN HCL [Concomitant]
  8. AVAPRO [Concomitant]
  9. GLYBURIDE [Concomitant]
  10. HYDRALAZINE HCL [Concomitant]
  11. FUROSEMIDE [Concomitant]
     Dosage: TOTAL DAILY DOSE: 40 MG
  12. COMPAZINE [Concomitant]
  13. ATIVAN [Concomitant]

REACTIONS (3)
  - DEATH [None]
  - DEEP VEIN THROMBOSIS [None]
  - FALL [None]
